FAERS Safety Report 6552141-0 (Version None)
Quarter: 2010Q1

REPORT INFORMATION
  Report Type: 
  Country: None (occurrence: None)
  Receive Date: 20100126
  Receipt Date: 20100115
  Transmission Date: 20100710
  Serious: Yes (Life-Threatening, Other)
  Sender: FDA-Public Use
  Company Number: SE-JNJFOC-20100105903

PATIENT
  Sex: Female
  Weight: 1.3 kg

DRUGS (10)
  1. REMICADE [Suspect]
     Indication: DRUG EXPOSURE DURING PREGNANCY
  2. ASACOL [Suspect]
     Indication: DRUG EXPOSURE DURING PREGNANCY
  3. AZATHIOPRINE [Suspect]
     Indication: DRUG EXPOSURE DURING PREGNANCY
  4. AZATHIOPRINE [Suspect]
  5. PREDNISOLONE [Concomitant]
     Indication: DRUG EXPOSURE DURING PREGNANCY
  6. PREDNISOLONE [Concomitant]
  7. PREDNISOLONE [Concomitant]
  8. PREDNISOLONE [Concomitant]
     Dosage: ORAL WAS STARTED AFTER THE 2 WEEKS OF INTRAVENOUS PREDNISOLONE. DOSE WAS THEN REDUCED TO 5 MG/WEEK
  9. PREDNISOLONE [Concomitant]
  10. PREDNISOLONE [Concomitant]

REACTIONS (2)
  - NEONATAL ASPHYXIA [None]
  - PREMATURE BABY [None]
